FAERS Safety Report 18025678 (Version 1)
Quarter: 2020Q3

REPORT INFORMATION
  Report Type: Report from Study
  Country: FR (occurrence: FR)
  Receive Date: 20200715
  Receipt Date: 20200715
  Transmission Date: 20201103
  Serious: Yes (Death)
  Sender: FDA-Public Use
  Company Number: FR-BAXTER-2020BAX014383

PATIENT
  Age: 72 Year
  Sex: Male

DRUGS (3)
  1. DOXIL [Suspect]
     Active Substance: DOXORUBICIN HYDROCHLORIDE
     Indication: PLASMA CELL MYELOMA
     Dosage: 4.2857 MG/M2
     Route: 065
     Dates: end: 20180702
  2. VELCADE [Suspect]
     Active Substance: BORTEZOMIB
     Indication: PLASMA CELL MYELOMA
     Dosage: 2 WEEKS PER CYCLE
     Route: 065
     Dates: end: 20180702
  3. DEXAMETHASONE. [Suspect]
     Active Substance: DEXAMETHASONE
     Indication: PLASMA CELL MYELOMA
     Dosage: 2 WEEKS PER CYCLE
     Route: 065
     Dates: end: 20180702

REACTIONS (1)
  - General physical health deterioration [Fatal]
